FAERS Safety Report 22027713 (Version 3)
Quarter: 2023Q1

REPORT INFORMATION
  Report Type: Spontaneous
  Country: AR (occurrence: AR)
  Receive Date: 20230223
  Receipt Date: 20230325
  Transmission Date: 20230418
  Serious: Yes (Life-Threatening, Hospitalization, Other)
  Sender: FDA-Public Use
  Company Number: AR-002147023-NVSC2023AR035073

PATIENT
  Age: 58 Year
  Sex: Female
  Weight: 60 kg

DRUGS (5)
  1. GILENYA [Suspect]
     Active Substance: FINGOLIMOD HYDROCHLORIDE
     Indication: Multiple sclerosis
     Dosage: 0.5 MG, QD
     Route: 048
     Dates: start: 2011, end: 20230207
  2. GILENYA [Suspect]
     Active Substance: FINGOLIMOD HYDROCHLORIDE
     Indication: Relapsing-remitting multiple sclerosis
  3. HYDROCHLOROTHIAZIDE\VALSARTAN [Concomitant]
     Active Substance: HYDROCHLOROTHIAZIDE\VALSARTAN
     Indication: Product used for unknown indication
     Dosage: (1 UNIT NOT PROVIDED), IN THE MORNING
     Route: 065
  4. SERTRALINE [Concomitant]
     Active Substance: SERTRALINE HYDROCHLORIDE
     Indication: Product used for unknown indication
     Dosage: 50 MG, QD, (IN THE MORNING)
     Route: 065
  5. CLONAZEPAM [Concomitant]
     Active Substance: CLONAZEPAM
     Indication: Product used for unknown indication
     Dosage: 0.5 MG, QD, (AT NIGHT)
     Route: 065

REACTIONS (27)
  - Blood immunoglobulin A decreased [Unknown]
  - Fall [Unknown]
  - Gait disturbance [Unknown]
  - Pelvic fracture [Unknown]
  - Paresis [Unknown]
  - Magnetic resonance imaging head abnormal [Unknown]
  - White matter lesion [Unknown]
  - Lordosis [Unknown]
  - Facet joint syndrome [Unknown]
  - Intervertebral disc degeneration [Unknown]
  - Intervertebral disc protrusion [Unknown]
  - Spinal cord disorder [Unknown]
  - Scoliosis [Unknown]
  - Spinal meningeal cyst [Unknown]
  - Uterine leiomyoma [Unknown]
  - Memory impairment [Unknown]
  - Attention deficit hyperactivity disorder [Unknown]
  - Dysarthria [Unknown]
  - CSF protein increased [Unknown]
  - Lumbar vertebral fracture [Unknown]
  - Lymphopenia [Unknown]
  - Progressive multifocal leukoencephalopathy [Not Recovered/Not Resolved]
  - Clumsiness [Unknown]
  - Nervous system disorder [Unknown]
  - Personality change [Unknown]
  - Cognitive disorder [Unknown]
  - Asthenia [Unknown]

NARRATIVE: CASE EVENT DATE: 20210301
